FAERS Safety Report 13284670 (Version 3)
Quarter: 2022Q2

REPORT INFORMATION
  Report Type: Report from Study
  Country: US (occurrence: US)
  Receive Date: 20170301
  Receipt Date: 20220418
  Transmission Date: 20220720
  Serious: Yes (Other)
  Sender: FDA-Public Use
  Company Number: US-JAZZ-2017-US-001388

PATIENT
  Age: 40 Year
  Sex: Female

DRUGS (13)
  1. XYREM [Suspect]
     Active Substance: SODIUM OXYBATE
     Indication: Narcolepsy
     Dosage: 1.5 GRAM, BID
     Route: 048
     Dates: start: 201610, end: 2016
  2. XYREM [Suspect]
     Active Substance: SODIUM OXYBATE
     Indication: Cataplexy
     Dosage: 2.25 GRAM, BID
     Route: 048
     Dates: start: 2016, end: 2016
  3. XYREM [Suspect]
     Active Substance: SODIUM OXYBATE
     Dosage: 3 GRAM, BID
     Route: 048
     Dates: start: 201612
  4. HYDRALAZINE HYDROCHLORIDE [Suspect]
     Active Substance: HYDRALAZINE HYDROCHLORIDE
     Indication: Product used for unknown indication
     Dosage: UNK
  5. FOCALIN                            /01611102/ [Concomitant]
  6. KETOROLAC [Concomitant]
     Active Substance: KETOROLAC TROMETHAMINE
  7. ALEVE [Concomitant]
     Active Substance: NAPROXEN SODIUM
  8. LEVOTHYROXINE [Concomitant]
     Active Substance: LEVOTHYROXINE
  9. LORATADINE [Concomitant]
     Active Substance: LORATADINE
  10. MAGNESIUM                          /00082501/ [Concomitant]
  11. MOTRIN IB [Concomitant]
     Active Substance: IBUPROFEN
  12. PROTRIPTYLINE HYDROCHLORIDE [Concomitant]
     Active Substance: PROTRIPTYLINE HYDROCHLORIDE
  13. HERBALS\TURMERIC [Concomitant]
     Active Substance: HERBALS\TURMERIC
     Indication: Product used for unknown indication
     Dosage: UNK

REACTIONS (7)
  - Hypokalaemia [Recovered/Resolved]
  - Surgery [Unknown]
  - Ventricular extrasystoles [Recovered/Resolved]
  - Morton^s neuralgia [Unknown]
  - Tendon rupture [Unknown]
  - Blood electrolytes abnormal [Unknown]
  - Anxiety [Unknown]

NARRATIVE: CASE EVENT DATE: 20161201
